FAERS Safety Report 11267734 (Version 1)
Quarter: 2015Q3

REPORT INFORMATION
  Report Type: Spontaneous
  Country: US (occurrence: US)
  Receive Date: 20150713
  Receipt Date: 20150713
  Transmission Date: 20151125
  Serious: No
  Sender: FDA-Public Use
  Company Number: US-TAKEDA-2013MPI000979

PATIENT
  Sex: Female
  Weight: 59.86 kg

DRUGS (2)
  1. ZOMETA [Concomitant]
     Active Substance: ZOLEDRONIC ACID
     Dosage: 4 MG, UNK
  2. VELCADE [Suspect]
     Active Substance: BORTEZOMIB
     Indication: PLASMA CELL MYELOMA
     Dosage: 2 MG, ON DAYS 1, 4, 8 AND 11
     Route: 065

REACTIONS (3)
  - Pain [Unknown]
  - Asthenia [Unknown]
  - Constipation [Unknown]
